FAERS Safety Report 12431274 (Version 2)
Quarter: 2016Q3

REPORT INFORMATION
  Report Type: Spontaneous
  Country: FR (occurrence: FR)
  Receive Date: 20160603
  Receipt Date: 20160729
  Transmission Date: 20161109
  Serious: Yes (Hospitalization)
  Sender: FDA-Public Use
  Company Number: FR-BRISTOL-MYERS SQUIBB COMPANY-BMS-2016-042718

PATIENT
  Age: 58 Year
  Sex: Male

DRUGS (5)
  1. ABILIFY MAINTENA [Suspect]
     Active Substance: ARIPIPRAZOLE
     Dosage: UNK, QMO
     Route: 030
     Dates: start: 20150803
  2. ABILIFY MAINTENA [Suspect]
     Active Substance: ARIPIPRAZOLE
     Indication: SCHIZOAFFECTIVE DISORDER
     Dosage: UNK, QMO
     Route: 030
     Dates: start: 20150706
  3. ABILIFY MAINTENA [Suspect]
     Active Substance: ARIPIPRAZOLE
     Dosage: UNK, QMO
     Route: 030
     Dates: start: 20150902
  4. ABILIFY [Suspect]
     Active Substance: ARIPIPRAZOLE
     Indication: SCHIZOAFFECTIVE DISORDER
     Dosage: 15 MG, QD
     Route: 048
     Dates: start: 20150608, end: 20150720
  5. ABILIFY MAINTENA [Suspect]
     Active Substance: ARIPIPRAZOLE
     Dosage: UNK, QMO
     Route: 030
     Dates: start: 20151001

REACTIONS (4)
  - Delusion [Recovered/Resolved]
  - Tachyphrenia [Recovered/Resolved]
  - Logorrhoea [Recovered/Resolved]
  - Anxiety disorder [Recovered/Resolved]

NARRATIVE: CASE EVENT DATE: 201510
